FAERS Safety Report 8547120-8 (Version None)
Quarter: 2012Q3

REPORT INFORMATION
  Report Type: 
  Country: None (occurrence: None)
  Receive Date: 20120727
  Receipt Date: 20120216
  Transmission Date: 20120928
  Serious: No
  Sender: FDA-Public Use
  Company Number: US-ASTRAZENECA-2012SE10886

PATIENT
  Age: 67 Year
  Sex: Female

DRUGS (1)
  1. SEROQUEL [Suspect]
     Indication: BIPOLAR DISORDER
     Dosage: 100 HS AND 50 MG TWICE DURING THE DAY
     Route: 048

REACTIONS (5)
  - PHARYNGEAL OEDEMA [None]
  - DYSPNOEA [None]
  - SINUS CONGESTION [None]
  - NASAL CONGESTION [None]
  - ADVERSE DRUG REACTION [None]
